FAERS Safety Report 9461216 (Version 2)
Quarter: 2013Q4

REPORT INFORMATION
  Report Type: Spontaneous
  Country: US (occurrence: US)
  Receive Date: 20130816
  Receipt Date: 20131022
  Transmission Date: 20140711
  Serious: Yes (Hospitalization)
  Sender: FDA-Public Use
  Company Number: US-TEVA-376799USA

PATIENT
  Sex: Female

DRUGS (1)
  1. PARAGARD 380A [Suspect]
     Indication: CONTRACEPTION
     Route: 015
     Dates: end: 20121126

REACTIONS (5)
  - Device breakage [Unknown]
  - Medical device complication [Recovered/Resolved]
  - Device expulsion [Recovered/Resolved]
  - Abdominal pain [Unknown]
  - Vaginal haemorrhage [Unknown]
